FAERS Safety Report 8461450-X (Version None)
Quarter: 2012Q2

REPORT INFORMATION
  Report Type: 
  Country: None (occurrence: None)
  Receive Date: 20120323
  Receipt Date: 20111017
  Transmission Date: 20120825
  Serious: Yes (Hospitalization)
  Sender: FDA-Public Use
  Company Number: 163-21880-11093008

PATIENT
  Age: 76 Year
  Sex: Female

DRUGS (3)
  1. REVLIMID [Suspect]
     Indication: MYELODYSPLASTIC SYNDROME
     Dosage: 5 MG, D1-28, PO
     Route: 048
     Dates: start: 20110901, end: 20111001
  2. SYNTHROID [Concomitant]
  3. M.V.I. [Concomitant]

REACTIONS (1)
  - PYREXIA [None]
